FAERS Safety Report 5823171-9 (Version None)
Quarter: 2008Q3

REPORT INFORMATION
  Report Type: 
  Country: None (occurrence: None)
  Receive Date: 20080725
  Receipt Date: 20080718
  Transmission Date: 20090109
  Serious: Yes (Other)
  Sender: FDA-Public Use
  Company Number: PHBS2008CA05177

PATIENT
  Age: 19 Year
  Sex: Female

DRUGS (4)
  1. VALSARTAN [Suspect]
  2. METOPROLOL TARTRATE [Suspect]
  3. MYCOPHENOLATE MOFETIL [Suspect]
  4. PREDNISONE [Suspect]

REACTIONS (1)
  - DEEP VEIN THROMBOSIS [None]
